FAERS Safety Report 25587099 (Version 2)
Quarter: 2025Q4

REPORT INFORMATION
  Report Type: Spontaneous
  Country: US (occurrence: US)
  Receive Date: 20250721
  Receipt Date: 20251021
  Transmission Date: 20260118
  Serious: No
  Sender: Phathom Pharmaceuticals
  Company Number: US-PHATHOM PHARMACEUTICALS INC.-2025PHT01373

PATIENT
  Age: 37 Year
  Sex: Female
  Weight: 58.957 kg

DRUGS (9)
  1. VOQUEZNA [Suspect]
     Active Substance: VONOPRAZAN FUMARATE
     Indication: Gastrooesophageal reflux disease
     Dosage: 20 MG, 1X/DAY
     Route: 048
     Dates: start: 20250408, end: 2025
  2. LISDEXAMFETAMINE [Suspect]
     Active Substance: LISDEXAMFETAMINE
     Dosage: UNK
     Dates: end: 2025
  3. LAMOTRIGINE [Concomitant]
     Active Substance: LAMOTRIGINE
  4. TRETINOIN [Concomitant]
     Active Substance: TRETINOIN
  5. NORGESTREL/ETHINYL ESTRADIOL [Concomitant]
     Active Substance: ETHINYL ESTRADIOL\NORGESTREL
  6. FAMOTIDINE [Concomitant]
     Active Substance: FAMOTIDINE
  7. ALDACTONE [Concomitant]
     Active Substance: SPIRONOLACTONE
  8. VILAZODONE [Concomitant]
     Active Substance: VILAZODONE
  9. AZELAIC ACID [Concomitant]
     Active Substance: AZELAIC ACID

REACTIONS (1)
  - Amnesia [Recovering/Resolving]

NARRATIVE: CASE EVENT DATE: 20250401
